FAERS Safety Report 7136145-5 (Version None)
Quarter: 2010Q4

REPORT INFORMATION
  Report Type: 
  Country: None (occurrence: None)
  Receive Date: 20101205
  Receipt Date: 20101123
  Transmission Date: 20110411
  Serious: Yes (Hospitalization)
  Sender: FDA-Public Use
  Company Number: IN-BRISTOL-MYERS SQUIBB COMPANY-15400849

PATIENT
  Age: 46 Year
  Sex: Male
  Weight: 135 kg

DRUGS (6)
  1. ONGLYZA [Suspect]
     Indication: TYPE 2 DIABETES MELLITUS
     Route: 048
     Dates: start: 20101022, end: 20101109
  2. COVERSYL PLUS [Suspect]
     Dosage: TABS
     Dates: start: 20101022, end: 20101109
  3. GLYCOMET [Concomitant]
     Indication: TYPE 2 DIABETES MELLITUS
     Dosage: TABS, DURATION 3 1/2 YRS
     Dates: end: 20101109
  4. PLAVIX [Concomitant]
     Dosage: TABS
     Route: 048
     Dates: end: 20101109
  5. NEXIUM [Concomitant]
     Dosage: TABS
  6. DIAMICRON [Concomitant]
     Indication: TYPE 2 DIABETES MELLITUS
     Dosage: FORMLN:TAB DIAMICRON-XR, 3 1/2 YRS DURATION
     Dates: end: 20101109

REACTIONS (1)
  - PANCREATITIS ACUTE [None]
